FAERS Safety Report 7772348-4 (Version None)
Quarter: 2011Q3

REPORT INFORMATION
  Report Type: 
  Country: None (occurrence: None)
  Receive Date: 20110922
  Receipt Date: 20101206
  Transmission Date: 20111222
  Serious: No
  Sender: FDA-Public Use
  Company Number: US-ASTRAZENECA-2007UW06091

PATIENT
  Age: 17632 Day
  Sex: Female
  Weight: 72.6 kg

DRUGS (23)
  1. SEROQUEL [Suspect]
     Dosage: 100 MG TO  200 MG
     Route: 048
     Dates: start: 20020315
  2. IMIPRAMINE [Concomitant]
     Dosage: 50 MG 3 TIMES A DAY, 100 MG
     Route: 048
  3. SEROQUEL [Suspect]
     Route: 048
     Dates: start: 19970101, end: 20060101
  4. RELAFEN [Concomitant]
     Dosage: 1 G QD, AS NEEDED
     Route: 065
  5. NORVASC [Concomitant]
     Route: 048
  6. SEREVENT [Concomitant]
     Dosage: 21 MCG/AC AER DISPENSED
     Route: 045
  7. SEROQUEL [Suspect]
     Indication: DEPRESSION
     Dosage: 100/200 MG
     Route: 048
     Dates: start: 19970401, end: 20060201
  8. AVANDIA [Concomitant]
     Route: 065
  9. ALDACTONE [Concomitant]
     Route: 065
  10. NASACORT [Concomitant]
     Route: 045
  11. SEROQUEL [Suspect]
     Dosage: 100 MG TO  200 MG
     Route: 048
     Dates: start: 20020315
  12. CRESTOR [Concomitant]
     Route: 065
  13. SINGULAIR [Concomitant]
     Route: 065
  14. WELLBUTRIN [Concomitant]
     Route: 065
  15. SEROQUEL [Suspect]
     Route: 048
     Dates: start: 19970101, end: 20060101
  16. ATACAND [Concomitant]
     Dosage: 16-12.5 MG- 32 MG
     Route: 065
  17. PREMPHASE (PREMARIN;CYCRIN 14/14) [Concomitant]
     Dosage: 0.625/5 MG A DAY
     Route: 065
  18. LASIX [Concomitant]
     Route: 065
  19. TOPROL-XL [Concomitant]
     Route: 048
  20. SEROQUEL [Suspect]
     Indication: ANXIETY
     Dosage: 100/200 MG
     Route: 048
     Dates: start: 19970401, end: 20060201
  21. NEURONTIN [Concomitant]
     Dosage: 300 MG HS, 600 MG BID, 300 MG TID
     Route: 048
  22. GLUCOPHAGE [Concomitant]
     Route: 065
  23. LORAZEPAM [Concomitant]
     Route: 065

REACTIONS (8)
  - HYPERTENSION [None]
  - RENAL DISORDER [None]
  - BACK PAIN [None]
  - GAIT DISTURBANCE [None]
  - TYPE 2 DIABETES MELLITUS [None]
  - ARTHRITIS [None]
  - HYPOAESTHESIA [None]
  - NECK PAIN [None]
